FAERS Safety Report 18412893 (Version 1)
Quarter: 2020Q4

REPORT INFORMATION
  Report Type: Spontaneous
  Country: CA (occurrence: CA)
  Receive Date: 20201022
  Receipt Date: 20201022
  Transmission Date: 20210114
  Serious: Yes (Hospitalization)
  Sender: FDA-Public Use
  Company Number: CA-PFIZER INC-2020402681

PATIENT
  Age: 48 Year
  Sex: Male

DRUGS (13)
  1. PANTOPRAZOLE [Concomitant]
     Active Substance: PANTOPRAZOLE
  2. ATORVASTATIN [Concomitant]
     Active Substance: ATORVASTATIN
  3. CLAVULIN [AMOXICILLIN SODIUM;CLAVULANATE POTASSIUM] [Concomitant]
     Active Substance: AMOXICILLIN\CLAVULANATE POTASSIUM
  4. TYLENOL [Concomitant]
     Active Substance: ACETAMINOPHEN
  5. METOPROLOL. [Concomitant]
     Active Substance: METOPROLOL
  6. TAMSULOSIN [Concomitant]
     Active Substance: TAMSULOSIN
  7. ALLOPURINOL. [Concomitant]
     Active Substance: ALLOPURINOL
  8. QUETIAPINE. [Concomitant]
     Active Substance: QUETIAPINE
  9. ASA [Concomitant]
     Active Substance: ASPIRIN
  10. SACCHAROMYCES BOULARDII [Concomitant]
     Active Substance: SACCHAROMYCES CEREVISIAE
  11. TRAZODONE [Concomitant]
     Active Substance: TRAZODONE HYDROCHLORIDE
  12. LINEZOLID. [Suspect]
     Active Substance: LINEZOLID
     Indication: OSTEOMYELITIS
     Dosage: 600 DF, 2X/DAY
     Route: 048
  13. IRON [Concomitant]
     Active Substance: IRON

REACTIONS (8)
  - Thrombocytopenia [Unknown]
  - Diarrhoea [Unknown]
  - Rash [Unknown]
  - Lip swelling [Unknown]
  - Angioedema [Unknown]
  - Periorbital oedema [Unknown]
  - Dehydration [Unknown]
  - Face oedema [Unknown]
